FAERS Safety Report 4395673-6 (Version None)
Quarter: 2004Q3

REPORT INFORMATION
  Report Type: 
  Country: None (occurrence: None)
  Receive Date: 20040708
  Receipt Date: 20040630
  Transmission Date: 20050211
  Serious: Yes (Hospitalization, Disabling, Other)
  Sender: FDA-Public Use
  Company Number: 2004221797US

PATIENT
  Sex: Female
  Weight: 90.7 kg

DRUGS (2)
  1. CELEBREX [Suspect]
     Indication: ARTHRITIS
     Dosage: ORAL
     Route: 048
     Dates: end: 20000101
  2. ANTIHYPERTENSIVES [Concomitant]

REACTIONS (10)
  - ABASIA [None]
  - CONTUSION [None]
  - DIALYSIS [None]
  - DYSPNOEA [None]
  - FEELING ABNORMAL [None]
  - LIVER DISORDER [None]
  - OEDEMA PERIPHERAL [None]
  - RENAL FAILURE [None]
  - SKIN DISCOLOURATION [None]
  - VASCULAR ACCESS COMPLICATION [None]
